FAERS Safety Report 16566822 (Version 3)
Quarter: 2021Q1

REPORT INFORMATION
  Report Type: Spontaneous
  Country: US (occurrence: US)
  Receive Date: 20190712
  Receipt Date: 20210330
  Transmission Date: 20210419
  Serious: Yes (Other)
  Sender: FDA-Public Use
  Company Number: US-009507513-1807USA005590

PATIENT
  Sex: Female
  Weight: 124 kg

DRUGS (13)
  1. FLEXERIL [Concomitant]
     Active Substance: CYCLOBENZAPRINE HYDROCHLORIDE
     Indication: MUSCLE RELAXANT THERAPY
     Dosage: UNK
     Dates: start: 1992
  2. METFORMIN [Suspect]
     Active Substance: METFORMIN HYDROCHLORIDE
     Dosage: UNK
     Route: 048
  3. CLOPIDOGREL [Concomitant]
     Active Substance: CLOPIDOGREL BISULFATE
     Dosage: UNK
  4. CARTIA (ASPIRIN) [Concomitant]
     Active Substance: ASPIRIN
     Indication: CARDIAC DISORDER
     Dosage: 180 MILLIGRAM, BID
  5. ACETAZOLAMIDE. [Concomitant]
     Active Substance: ACETAZOLAMIDE
     Indication: EYE DISORDER
     Dosage: UNK
  6. PREVNAR 13 [Suspect]
     Active Substance: PNEUMOCOCCAL 13-VALENT CONJUGATE VACCINE
     Dosage: UNK
     Dates: start: 20180326
  7. ZOSTAVAX [Suspect]
     Active Substance: VARICELLA-ZOSTER VIRUS STRAIN OKA/MERCK LIVE ANTIGEN
     Indication: PROPHYLAXIS
     Dosage: .65 MILLILITER
     Route: 058
     Dates: start: 20131028, end: 20131028
  8. INFLUENZA VIRUS VACCINE INACTIVATED (UNSPECIFIED) [Suspect]
     Active Substance: INFLUENZA VIRUS VACCINE
     Dosage: UNK
     Dates: start: 20160901
  9. BENAZEPRIL HYDROCHLORIDE. [Concomitant]
     Active Substance: BENAZEPRIL HYDROCHLORIDE
     Indication: CARDIAC DISORDER
     Dosage: 40 MILLIGRAM, QD
  10. FOSAMAX [Concomitant]
     Active Substance: ALENDRONATE SODIUM
     Indication: BONE DISORDER
     Dosage: UNK
  11. STERILE DILUENT (WATER) [Suspect]
     Active Substance: WATER
     Indication: PROPHYLAXIS
     Dosage: UNK
     Dates: start: 20131028
  12. PREDNISONE. [Suspect]
     Active Substance: PREDNISONE
     Indication: SCLERITIS
     Dosage: 2.5 MILLIGRAM, QD
  13. PREDNISONE. [Suspect]
     Active Substance: PREDNISONE
     Indication: SCLERITIS
     Dosage: INCREASE TO 40 MG DAILY

REACTIONS (40)
  - Immunosuppression [Not Recovered/Not Resolved]
  - Nocardiosis [Not Recovered/Not Resolved]
  - Anxiety [Recovering/Resolving]
  - Burning sensation [Unknown]
  - Blindness transient [Recovered/Resolved with Sequelae]
  - Ophthalmic herpes zoster [Unknown]
  - Pain [Unknown]
  - Fibromyalgia [Not Recovered/Not Resolved]
  - Chronic gastritis [Unknown]
  - Cataract [Unknown]
  - Cataract [Not Recovered/Not Resolved]
  - Acute kidney injury [Not Recovered/Not Resolved]
  - Herpes zoster [Unknown]
  - Gastroenteritis viral [Unknown]
  - Contusion [Unknown]
  - Osteoporosis [Not Recovered/Not Resolved]
  - Rotator cuff syndrome [Unknown]
  - Rheumatoid arthritis [Recovered/Resolved]
  - Sjogren^s syndrome [Unknown]
  - Depression [Recovering/Resolving]
  - Vaccination failure [Unknown]
  - Pain in extremity [Unknown]
  - Scleritis [Not Recovered/Not Resolved]
  - Uveitic glaucoma [Unknown]
  - Hypokalaemia [Not Recovered/Not Resolved]
  - Diabetic eye disease [Recovered/Resolved]
  - Dry eye [Unknown]
  - Large intestine polyp [Not Recovered/Not Resolved]
  - Vaccination site erythema [Unknown]
  - Vaccination site swelling [Unknown]
  - Localised infection [Unknown]
  - Fall [Unknown]
  - Drug hypersensitivity [Unknown]
  - Iridocyclitis [Not Recovered/Not Resolved]
  - Type 2 diabetes mellitus [Recovered/Resolved]
  - Cataract subcapsular [Unknown]
  - Vaccination site warmth [Unknown]
  - Glaucoma [Unknown]
  - Post herpetic neuralgia [Unknown]
  - Blood creatinine increased [Recovered/Resolved]

NARRATIVE: CASE EVENT DATE: 201310
